FAERS Safety Report 5164481-0 (Version None)
Quarter: 2006Q4

REPORT INFORMATION
  Report Type: 
  Country: None (occurrence: None)
  Receive Date: 20061127
  Receipt Date: 20061127
  Transmission Date: 20070319
  Serious: Yes (Life-Threatening, Hospitalization)
  Sender: FDA-Public Use
  Company Number: None

PATIENT
  Age: 56 Year
  Sex: Female
  Weight: 70.7611 kg

DRUGS (15)
  1. NOLVADEX [Suspect]
     Indication: BREAST CANCER
     Dosage: 20 MG DAILY ORALLY
     Route: 048
     Dates: start: 20020820, end: 20061005
  2. ALBUTEROL [Concomitant]
  3. AMBIEN [Concomitant]
  4. AMIDOARONE HCL [Concomitant]
  5. ASPIRIN [Concomitant]
  6. ATENOLOL [Concomitant]
  7. COLACE [Concomitant]
  8. FERROUS SULFATE TAB [Concomitant]
  9. FUROSEMIDE [Concomitant]
  10. HYDROCHLOROTHIAZIDE [Concomitant]
  11. LASIX [Concomitant]
  12. LIPITOR [Concomitant]
  13. ORATEK [Concomitant]
  14. PERCOCET [Concomitant]
  15. SENOKOT [Concomitant]

REACTIONS (5)
  - DYSPNOEA [None]
  - PLEURAL EFFUSION [None]
  - POST PROCEDURAL PULMONARY EMBOLISM [None]
  - PULMONARY EMBOLISM [None]
  - VASCULAR BYPASS GRAFT [None]
